FAERS Safety Report 5781838-5 (Version None)
Quarter: 2008Q2

REPORT INFORMATION
  Report Type: 
  Country: None (occurrence: None)
  Receive Date: 20080623
  Receipt Date: 20080115
  Transmission Date: 20081010
  Serious: No
  Sender: FDA-Public Use
  Company Number: US-ASTRAZENECA-2008UW01095

PATIENT
  Sex: Female

DRUGS (1)
  1. RHINOCORT [Suspect]
     Indication: TINNITUS
     Dosage: 2 SPRAY EACH NOSTRIL PER DAY
     Route: 045
     Dates: start: 20071201

REACTIONS (1)
  - TINNITUS [None]
